FAERS Safety Report 10245366 (Version 1)
Quarter: 2014Q2

REPORT INFORMATION
  Report Type: Report from Study
  Country: US (occurrence: US)
  Receive Date: 20140618
  Receipt Date: 20140618
  Transmission Date: 20141212
  Serious: Yes (Other)
  Sender: FDA-Public Use
  Company Number: US-ABBVIE-14P-163-1245938-00

PATIENT
  Sex: Female

DRUGS (5)
  1. HUMIRA PEN [Suspect]
     Indication: PSORIASIS
  2. HUMIRA PEN [Suspect]
     Indication: PSORIATIC ARTHROPATHY
  3. HUMIRA [Suspect]
     Indication: PSORIASIS
     Dates: end: 20130305
  4. HUMIRA [Suspect]
     Indication: PSORIATIC ARTHROPATHY
     Dates: start: 201308, end: 201406
  5. ENBREL [Concomitant]
     Indication: PRODUCT USED FOR UNKNOWN INDICATION

REACTIONS (7)
  - Ligament sprain [Unknown]
  - Meniscus injury [Unknown]
  - Accident at work [Unknown]
  - Ligament sprain [Unknown]
  - Injection site pain [Unknown]
  - Post procedural infection [Unknown]
  - Joint injury [Unknown]
